FAERS Safety Report 16883310 (Version 1)
Quarter: 2019Q4

REPORT INFORMATION
  Report Type: Spontaneous
  Country: RO (occurrence: RO)
  Receive Date: 20191004
  Receipt Date: 20191004
  Transmission Date: 20200122
  Serious: Yes (Death, Life-Threatening, Hospitalization, Other)
  Sender: FDA-Public Use
  Company Number: RO-ALKEM LABORATORIES LIMITED-RO-ALKEM-2019-08277

PATIENT
  Age: 66 Year
  Sex: Female
  Weight: 78 kg

DRUGS (19)
  1. AMPICILLIN (AMPICILLIN) [Suspect]
     Active Substance: AMPICILLIN
     Indication: URINARY TRACT INFECTION ENTEROCOCCAL
     Dosage: 2 DOSAGE FORM
     Route: 042
     Dates: start: 20170203, end: 20170211
  2. DEXAMETHASONE 8MG (DEXAMETHASONE) [Suspect]
     Active Substance: DEXAMETHASONE
     Indication: B PRECURSOR TYPE ACUTE LEUKAEMIA
     Dosage: 5 DOSAGE FORM
     Route: 042
     Dates: start: 20170123, end: 20170126
  3. MEROPENEM (MEROPENEM) [Suspect]
     Active Substance: MEROPENEM
     Indication: ENTEROCOCCAL INFECTION
     Dosage: 1 DOSAGE FORM, TID
     Route: 042
     Dates: start: 20170212
  4. SUMETROLIM 400 MG/80 MG [Suspect]
     Active Substance: SULFAMETHOXAZOLE\TRIMETHOPRIM
     Indication: PRODUCT USED FOR UNKNOWN INDICATION
     Dosage: 4 DOSAGE FORM
     Route: 048
     Dates: start: 20170205, end: 20170213
  5. DEXAMETHASONE (DEXAMETHASONE) [Suspect]
     Active Substance: DEXAMETHASONE
     Dosage: 5 DOSAGE FORM
     Route: 042
     Dates: start: 20170113, end: 20170116
  6. DOXORUBICIN (DOXORUBICIN) [Suspect]
     Active Substance: DOXORUBICIN
     Indication: B PRECURSOR TYPE ACUTE LEUKAEMIA
     Dosage: 80 MILLIGRAM
     Route: 042
     Dates: start: 20170116
  7. METHOTREXATE (METHOTREXATE) [Suspect]
     Active Substance: METHOTREXATE
     Dosage: 345 MILLIGRAM
     Route: 042
     Dates: start: 20170203, end: 2017
  8. CYTARABINE (CYTARABINE) [Suspect]
     Active Substance: CYTARABINE
     Indication: B PRECURSOR TYPE ACUTE LEUKAEMIA
     Dosage: 25 MILLIGRAM
     Route: 039
     Dates: start: 20170130
  9. CYCLOPHOSPHAMIDE 200MG [Suspect]
     Active Substance: CYCLOPHOSPHAMIDE
     Indication: B PRECURSOR TYPE ACUTE LEUKAEMIA
     Dosage: 680 MILLIGRAM
     Route: 042
     Dates: start: 20170113, end: 20170115
  10. METHOTREXATE (METHOTREXATE) [Suspect]
     Active Substance: METHOTREXATE
     Dosage: 15 MILLIGRAM
     Route: 037
     Dates: start: 20170130, end: 2017
  11. VINCRISTINE (VINCRISTINE) [Suspect]
     Active Substance: VINCRISTINE
     Dosage: 2 DOSAGE FORM
     Route: 042
     Dates: start: 20170115, end: 201701
  12. LINEZOLID. [Suspect]
     Active Substance: LINEZOLID
     Indication: URINARY TRACT INFECTION ENTEROCOCCAL
     Dosage: 1 DOSAGE FORM, BID,
     Route: 042
     Dates: start: 20170212, end: 20170226
  13. CYTARABINE (CYTARABINE) [Suspect]
     Active Substance: CYTARABINE
     Indication: B PRECURSOR TYPE ACUTE LEUKAEMIA
     Dosage: 4 GRAM
     Route: 042
     Dates: start: 20170204, end: 20170205
  14. IMIPENEM (IMIPENEM) [Suspect]
     Active Substance: IMIPENEM
     Indication: URINARY TRACT INFECTION ENTEROCOCCAL
     Dosage: 1 DOSAGE FORM, QID
     Route: 042
     Dates: start: 20170213, end: 20170226
  15. METHOTREXATE (METHOTREXATE) [Suspect]
     Active Substance: METHOTREXATE
     Indication: B PRECURSOR TYPE ACUTE LEUKAEMIA
     Dosage: 1375 MILLIGRAM
     Route: 042
     Dates: start: 20170203, end: 2017
  16. NORMIX 200 MG [Suspect]
     Active Substance: RIFAXIMIN
     Indication: PRODUCT USED FOR UNKNOWN INDICATION
     Dosage: 3 DOSAGE FORM, BID
     Route: 048
     Dates: start: 20170203, end: 20170226
  17. METHYLPREDNISOLONE (METHYLPREDNISOLONE) [Suspect]
     Active Substance: METHYLPREDNISOLONE
     Indication: PRODUCT USED FOR UNKNOWN INDICATION
     Dosage: 50 MILLIGRAM, BID
     Route: 042
     Dates: start: 20170203, end: 20170205
  18. VINCRISTINE (VINCRISTINE) [Suspect]
     Active Substance: VINCRISTINE
     Indication: B PRECURSOR TYPE ACUTE LEUKAEMIA
     Dosage: 2 DOSAGE FORM
     Route: 042
     Dates: start: 201701, end: 20170123
  19. DEXMETHASONE1 % - EYE DROPS [Concomitant]
     Indication: PRODUCT USED FOR UNKNOWN INDICATION
     Dosage: 1 DROP, (ONE DROP PER HOUR IN THE CONJUNCTIVAL SAC, BETWEEN 4 AND 7.0-2.2017)
     Route: 031
     Dates: start: 20170204, end: 20170207

REACTIONS (5)
  - Hepatic infarction [Fatal]
  - Hepatotoxicity [Not Recovered/Not Resolved]
  - Clostridium difficile colitis [Recovered/Resolved]
  - Aplasia [Recovering/Resolving]
  - Acute hepatic failure [Fatal]

NARRATIVE: CASE EVENT DATE: 2017
